FAERS Safety Report 9813141 (Version 3)
Quarter: 2014Q2

REPORT INFORMATION
  Report Type: Spontaneous
  Country: US (occurrence: US)
  Receive Date: 20140113
  Receipt Date: 20140411
  Transmission Date: 20141212
  Serious: Yes (Hospitalization, Other)
  Sender: FDA-Public Use
  Company Number: US-PFIZER INC-2014010230

PATIENT
  Age: 82 Year
  Sex: 0

DRUGS (2)
  1. CELEBREX [Suspect]
     Indication: PAIN
     Dosage: 200 MG, 2X/DAY
     Route: 048
     Dates: start: 20131114, end: 2013
  2. ASPIRIN [Concomitant]
     Dosage: 81 MG, UNK

REACTIONS (1)
  - Gastrointestinal haemorrhage [Unknown]
